FAERS Safety Report 21634822 (Version 1)
Quarter: 2022Q4

REPORT INFORMATION
  Report Type: Report from Study
  Country: US (occurrence: US)
  Receive Date: 20221123
  Receipt Date: 20221123
  Transmission Date: 20230112
  Serious: Yes (Hospitalization)
  Sender: FDA-Public Use
  Company Number: US-MYLANLABS-2022M1131440

PATIENT
  Age: 64 Year
  Sex: Female

DRUGS (3)
  1. CISPLATIN [Suspect]
     Active Substance: CISPLATIN
     Indication: Uterine cancer
     Dosage: 100 MILLIGRAM/SQ. METER (ADMINISTERED IN ..)
     Route: 033
  2. PACLITAXEL [Suspect]
     Active Substance: PACLITAXEL
     Indication: Uterine cancer
     Dosage: UNK (ADMINISTERED IN A SODIUM CHLORIDE ..)
     Route: 033
  3. SODIUM CHLORIDE [Concomitant]
     Active Substance: SODIUM CHLORIDE
     Indication: Vehicle solution use
     Dosage: UNK (ADMINISTERED SODIUM CHLORIDE [NORMAL S...)
     Route: 033

REACTIONS (1)
  - Anastomotic leak [Recovering/Resolving]
